FAERS Safety Report 9801159 (Version 3)
Quarter: 2014Q1

REPORT INFORMATION
  Report Type: Spontaneous
  Country: US (occurrence: US)
  Receive Date: 20140107
  Receipt Date: 20140219
  Transmission Date: 20141002
  Serious: Yes (Other)
  Sender: FDA-Public Use
  Company Number: US-PFIZER INC-2014001232

PATIENT
  Age: 60 Year
  Sex: Female
  Weight: 63.49 kg

DRUGS (12)
  1. PRISTIQ [Suspect]
     Indication: DEPRESSION
     Dosage: 100 MG, 1X/DAY
     Route: 048
     Dates: start: 20120716
  2. PRISTIQ [Suspect]
     Dosage: 150 MG, 1X/DAY
     Route: 048
     Dates: start: 20130115
  3. PRISTIQ [Suspect]
     Dosage: 100 MG, DAILY
     Route: 048
  4. PRISTIQ [Suspect]
     Dosage: 200 MG, DAILY
     Route: 048
  5. ROZEREM [Concomitant]
     Indication: INSOMNIA
     Dosage: 8 MG, 1X/DAY (QHS)
     Dates: start: 20101216
  6. BENICAR/HCTZ 20/12.5 [Concomitant]
     Dosage: UNK
  7. DEXILANT [Concomitant]
     Dosage: 60 MG, 1X/DAY
  8. CADUET [Concomitant]
     Dosage: 5 MG, 1X/DAY
  9. MELOXICAM [Concomitant]
     Dosage: 7.5 MG, 1X/DAY
  10. XANAX [Concomitant]
     Indication: ANXIETY
     Dosage: 1 MG, TWICE DAILY, AS NEEDED
     Dates: start: 20120105
  11. VYVANSE [Concomitant]
     Indication: ATTENTION DEFICIT/HYPERACTIVITY DISORDER
     Dosage: 70 MG, 1X/DAY
     Dates: start: 20101016
  12. NEURONTIN [Concomitant]
     Indication: PAIN
     Dosage: 300 MG, QHS, AS NEEDED
     Dates: start: 20120404

REACTIONS (9)
  - Suicide attempt [Recovered/Resolved]
  - Suicidal ideation [Recovered/Resolved]
  - Breast mass [Unknown]
  - Renal neoplasm [Unknown]
  - Drug withdrawal syndrome [Unknown]
  - Depression [Unknown]
  - Crying [Unknown]
  - Intentional drug misuse [Unknown]
  - Anxiety [Unknown]
